FAERS Safety Report 6647481-0 (Version None)
Quarter: 2010Q1

REPORT INFORMATION
  Report Type: 
  Country: None (occurrence: None)
  Receive Date: 20100323
  Receipt Date: 20100323
  Transmission Date: 20100710
  Serious: Yes (Hospitalization)
  Sender: FDA-Public Use
  Company Number: None

PATIENT
  Age: 77 Year
  Sex: Male

DRUGS (1)
  1. GLYBURIDE [Suspect]
     Indication: DIABETES MELLITUS
     Dosage: 10 MG BID PO
     Route: 048
     Dates: start: 20090522

REACTIONS (4)
  - HYPOGLYCAEMIA [None]
  - OXYGEN SATURATION DECREASED [None]
  - SUPRAVENTRICULAR TACHYCARDIA [None]
  - UNRESPONSIVE TO STIMULI [None]
